FAERS Safety Report 7313735-8 (Version None)
Quarter: 2011Q1

REPORT INFORMATION
  Report Type: 
  Country: None (occurrence: None)
  Receive Date: 20110225
  Receipt Date: 20110125
  Transmission Date: 20110831
  Serious: Yes (Death)
  Sender: FDA-Public Use
  Company Number: US-TYCO HEALTHCARE/MALLINCKRODT-T201100361

PATIENT
  Sex: Female

DRUGS (6)
  1. RISPERDAL [Suspect]
     Route: 048
  2. MORPHINE [Suspect]
     Route: 048
  3. SSRI [Suspect]
     Route: 048
  4. TRAMADOL HCL [Suspect]
     Route: 048
  5. BENZODIAZEPINE DERIVATIVES [Suspect]
     Route: 048
  6. ANTIPSYCHOTICS [Suspect]
     Route: 048

REACTIONS (2)
  - CARDIO-RESPIRATORY ARREST [None]
  - COMPLETED SUICIDE [None]
